FAERS Safety Report 24409973 (Version 1)
Quarter: 2024Q4

REPORT INFORMATION
  Report Type: Spontaneous
  Country: US (occurrence: US)
  Receive Date: 20241008
  Receipt Date: 20241008
  Transmission Date: 20250114
  Serious: Yes (Death, Hospitalization, Other)
  Sender: AMGEN
  Company Number: US-AMGEN-USASP2024194400

PATIENT
  Age: 21 Year
  Sex: Female

DRUGS (3)
  1. RITUXIMAB [Suspect]
     Active Substance: RITUXIMAB
     Indication: Thrombocytopenia
     Dosage: UNK
     Route: 065
  2. PROMACTA [Concomitant]
     Active Substance: ELTROMBOPAG OLAMINE
     Indication: Immune thrombocytopenia
     Dosage: UNK
     Route: 065
  3. ENOXAPARIN [Concomitant]
     Active Substance: ENOXAPARIN
     Indication: Antiphospholipid syndrome
     Dosage: UNK
     Route: 065

REACTIONS (11)
  - Death [Fatal]
  - Pulmonary alveolar haemorrhage [Unknown]
  - Thrombotic microangiopathy [Unknown]
  - Antiphospholipid syndrome [Unknown]
  - Pneumonia pseudomonal [Recovered/Resolved]
  - Cerebral venous sinus thrombosis [Unknown]
  - Haemorrhage intracranial [Unknown]
  - Acute kidney injury [Unknown]
  - Vasculitis [Unknown]
  - Drug effective for unapproved indication [Unknown]
  - Off label use [Unknown]
